FAERS Safety Report 9158154 (Version 2)
Quarter: 2013Q2

REPORT INFORMATION
  Report Type: Spontaneous
  Country: US (occurrence: US)
  Receive Date: 20130312
  Receipt Date: 20130402
  Transmission Date: 20140414
  Serious: Yes (Hospitalization, Other)
  Sender: FDA-Public Use
  Company Number: US-B.I. PHARMACEUTICALS,INC./RIDGEFIELD-2013-BI-06072BP

PATIENT
  Age: 86 Year
  Sex: Male
  Weight: 97.07 kg

DRUGS (6)
  1. PRADAXA [Suspect]
     Indication: CEREBROVASCULAR ACCIDENT PROPHYLAXIS
     Dosage: 300 MG
     Route: 048
     Dates: start: 20120501, end: 20130207
  2. PRADAXA [Suspect]
     Indication: ATRIAL FIBRILLATION
  3. CRESTOR [Concomitant]
     Indication: HYPERLIPIDAEMIA
  4. AMLODIPINE/BENAZAPRINE [Concomitant]
     Indication: HYPERTENSION
  5. METOPROLOL [Concomitant]
     Indication: HYPERTENSION
  6. LASIX [Concomitant]
     Indication: OEDEMA

REACTIONS (4)
  - Gastrointestinal haemorrhage [Recovered/Resolved]
  - Dyspnoea [Unknown]
  - Dizziness [Unknown]
  - Fatigue [Unknown]
